FAERS Safety Report 24151620 (Version 2)
Quarter: 2024Q4

REPORT INFORMATION
  Report Type: Report from Study
  Country: US (occurrence: US)
  Receive Date: 20240730
  Receipt Date: 20241007
  Transmission Date: 20250115
  Serious: Yes (Other)
  Sender: INSMED
  Company Number: US-INSMED, INC.-2024-02001-US

PATIENT
  Sex: Female

DRUGS (1)
  1. ARIKAYCE [Suspect]
     Active Substance: AMIKACIN
     Indication: Mycobacterial infection
     Dosage: 590 MILLIGRAM, QOD
     Route: 055
     Dates: start: 202405, end: 20240713

REACTIONS (3)
  - Renal failure [Not Recovered/Not Resolved]
  - Tinnitus [Unknown]
  - Off label use [Unknown]

NARRATIVE: CASE EVENT DATE: 20240101
